FAERS Safety Report 19670269 (Version 1)
Quarter: 2021Q3

REPORT INFORMATION
  Report Type: Spontaneous
  Country: US (occurrence: US)
  Receive Date: 20210806
  Receipt Date: 20210806
  Transmission Date: 20211014
  Serious: Yes (Death, Hospitalization, Other)
  Sender: FDA-Public Use
  Company Number: US-SAOL THERAPEUTICS-2020SAO00466

PATIENT
  Age: 62 Year
  Sex: Male

DRUGS (2)
  1. LIORESAL [Suspect]
     Active Substance: BACLOFEN
     Indication: MULTIPLE SCLEROSIS
     Dosage: 178.54 ?G, \DAY
     Route: 037
     Dates: start: 20201014
  2. LIORESAL [Suspect]
     Active Substance: BACLOFEN
     Indication: MUSCLE SPASTICITY
     Dosage: UNK
     Dates: start: 20140213

REACTIONS (5)
  - Death [Fatal]
  - Hypotension [Unknown]
  - Apnoea [Unknown]
  - Unresponsive to stimuli [Unknown]
  - Mental status changes [Not Recovered/Not Resolved]

NARRATIVE: CASE EVENT DATE: 20201014
